FAERS Safety Report 11821894 (Version 2)
Quarter: 2016Q4

REPORT INFORMATION
  Report Type: Spontaneous
  Country: US (occurrence: US)
  Receive Date: 20151210
  Receipt Date: 20161017
  Transmission Date: 20170206
  Serious: No
  Sender: FDA-Public Use
  Company Number: US-JNJFOC-20150723634

PATIENT
  Age: 73 Year
  Sex: Female

DRUGS (17)
  1. BENADRYL [Concomitant]
     Active Substance: DIPHENHYDRAMINE HYDROCHLORIDE
  2. LYRICA [Concomitant]
     Active Substance: PREGABALIN
  3. COENZYME Q10 [Concomitant]
     Active Substance: UBIDECARENONE
  4. LOSARTAN. [Concomitant]
     Active Substance: LOSARTAN
  5. METOPROLOL. [Concomitant]
     Active Substance: METOPROLOL
  6. CAMELLIA SINENSIS [Concomitant]
     Active Substance: GREEN TEA LEAF
  7. VITAMIN D3 [Concomitant]
     Active Substance: CHOLECALCIFEROL
  8. HYDROCODONE [Concomitant]
     Active Substance: HYDROCODONE
  9. OMEGA III [Concomitant]
  10. TELMISARTAN. [Concomitant]
     Active Substance: TELMISARTAN
  11. PROTONIX [Concomitant]
     Active Substance: PANTOPRAZOLE SODIUM
  12. IMBRUVICA [Suspect]
     Active Substance: IBRUTINIB
     Indication: CHRONIC LYMPHOCYTIC LEUKAEMIA
     Route: 048
     Dates: start: 20150109
  13. MAGNESIUM [Concomitant]
     Active Substance: MAGNESIUM
  14. DOXYCYCLINE. [Suspect]
     Active Substance: DOXYCYCLINE
     Indication: PRODUCT USED FOR UNKNOWN INDICATION
     Route: 065
  15. PROBIOTICA [Concomitant]
     Active Substance: PROBIOTICS NOS
  16. COLACE [Concomitant]
     Active Substance: DOCUSATE SODIUM
  17. ROBAXIN [Concomitant]
     Active Substance: METHOCARBAMOL

REACTIONS (7)
  - Fatigue [Unknown]
  - Dehydration [Unknown]
  - Ulcer [Unknown]
  - Subcutaneous abscess [Unknown]
  - Sinusitis [Unknown]
  - Asthenia [Unknown]
  - Abdominal pain upper [Unknown]

NARRATIVE: CASE EVENT DATE: 2015
